FAERS Safety Report 8521090-0 (Version None)
Quarter: 2012Q3

REPORT INFORMATION
  Report Type: 
  Country: None (occurrence: None)
  Receive Date: 20120719
  Receipt Date: 20120718
  Transmission Date: 20120928
  Serious: Yes (Other)
  Sender: FDA-Public Use
  Company Number: US-ROCHE-1084984

PATIENT
  Sex: Female
  Weight: 74.91 kg

DRUGS (1)
  1. XELODA [Suspect]
     Indication: BREAST CANCER METASTATIC
     Route: 048
     Dates: start: 20120422

REACTIONS (2)
  - HYPERAESTHESIA [None]
  - TUMOUR MARKER INCREASED [None]
